FAERS Safety Report 9589569 (Version 1)
Quarter: 2013Q4

REPORT INFORMATION
  Report Type: Spontaneous
  Country: US (occurrence: US)
  Receive Date: 20131003
  Receipt Date: 20131003
  Transmission Date: 20140711
  Serious: No
  Sender: FDA-Public Use
  Company Number: US-AMGEN-USASP2012070712

PATIENT
  Sex: Male

DRUGS (1)
  1. ENBREL [Suspect]
     Indication: PSORIATIC ARTHROPATHY
     Dosage: 50 MG, EVERY 10 DAYS
     Dates: start: 20090226

REACTIONS (3)
  - Anal fissure [Recovered/Resolved]
  - Umbilical hernia [Recovered/Resolved]
  - Nasopharyngitis [Recovered/Resolved]
